FAERS Safety Report 21669441 (Version 1)
Quarter: 2022Q4

REPORT INFORMATION
  Report Type: Spontaneous
  Country: US (occurrence: None)
  Receive Date: 20221201
  Receipt Date: 20221201
  Transmission Date: 20230113
  Serious: Yes (Hospitalization, Other)
  Sender: FDA-Public Use
  Company Number: None

PATIENT
  Age: 64 Year
  Sex: Female
  Weight: 79.83 kg

DRUGS (1)
  1. MAGNESIUM CITRATE [Suspect]
     Active Substance: MAGNESIUM CITRATE
     Indication: Diagnostic procedure
     Dates: start: 20220525, end: 20220527

REACTIONS (6)
  - Diarrhoea [None]
  - Chills [None]
  - Weight decreased [None]
  - Nausea [None]
  - Decreased appetite [None]
  - Flatulence [None]

NARRATIVE: CASE EVENT DATE: 20220526
